FAERS Safety Report 8313190-5 (Version None)
Quarter: 2012Q2

REPORT INFORMATION
  Report Type: 
  Country: None (occurrence: None)
  Receive Date: 20120424
  Receipt Date: 20120410
  Transmission Date: 20120825
  Serious: Yes (Other)
  Sender: FDA-Public Use
  Company Number: JP-2012-13906

PATIENT
  Age: 69 Year
  Sex: Male
  Weight: 42 kg

DRUGS (17)
  1. SAMSCA [Suspect]
     Indication: FLUID RETENTION
     Dosage: 3.75 MG MILLIGRAM(S), QAM, ORAL
     Route: 048
     Dates: start: 20120221, end: 20120302
  2. ALOSENN (ACHILLEA MILLEFOLIUM, RUBIA TINCTORUM ROOT TINCTURE, SENNA AL [Concomitant]
  3. ESPO (EPOETIN ALFA) INJECTION [Concomitant]
  4. TRICHLORMETHIAZIDE [Suspect]
     Indication: CARDIAC FAILURE
     Dosage: 1 MG MILLIGRAM(S), DAILY DOSE, ORAL
     Route: 048
  5. URSO 250 [Concomitant]
  6. MAGLAX (MAGNESIUM OXIDE) [Concomitant]
  7. LENDORMIN (BROTIZOLAM) TABLET [Concomitant]
  8. CARVEDILOL [Concomitant]
  9. TICLOPIDINE HCL [Concomitant]
  10. ZOSYN [Concomitant]
  11. ISOSORBIDE DINITRATE [Concomitant]
  12. RABEPRAZOLE SODIUM [Concomitant]
  13. LASIX [Suspect]
     Indication: CARDIAC FAILURE
     Dosage: 80 MG MILLIGRAM(S), DAILY DOSE, ORAL
     Route: 048
  14. ALLOPURINOL [Concomitant]
  15. WARFARIN SODIUM [Concomitant]
  16. ASPIRIN [Concomitant]
  17. FERO GRADUMET (FERROUS SULFATE) TABLET [Concomitant]

REACTIONS (3)
  - RENAL FAILURE CHRONIC [None]
  - DEHYDRATION [None]
  - CONCOMITANT DISEASE AGGRAVATED [None]
